FAERS Safety Report 9726371 (Version 1)
Quarter: 2013Q4

REPORT INFORMATION
  Report Type: Spontaneous
  Country: NL (occurrence: NL)
  Receive Date: 20131203
  Receipt Date: 20131203
  Transmission Date: 20140711
  Serious: Yes (Hospitalization)
  Sender: FDA-Public Use
  Company Number: NL-AMGEN-NLDSP2013084667

PATIENT
  Age: 56 Year
  Sex: Male

DRUGS (2)
  1. NEULASTA [Suspect]
     Indication: PRODUCT USED FOR UNKNOWN INDICATION
     Dosage: 6 MG, UNK
     Route: 058
     Dates: start: 20130518, end: 20131128
  2. CHEMOTHERAPEUTICS [Concomitant]
     Dosage: UNK
     Dates: end: 2013

REACTIONS (2)
  - Blood test abnormal [Unknown]
  - Condition aggravated [Unknown]
